FAERS Safety Report 7687730 (Version 4)
Quarter: 2013Q4

REPORT INFORMATION
  Report Type: Spontaneous
  Country: JP (occurrence: None)
  Receive Date: 20101101
  Receipt Date: 20131227
  Transmission Date: 20140711
  Serious: Yes (Hospitalization, Other)
  Sender: FDA-Public Use
  Company Number: 2009JP001782

PATIENT
  Age: 20 Year
  Sex: Female
  Weight: 60.3 kg

DRUGS (72)
  1. PROGRAF [Suspect]
     Indication: LUPUS NEPHRITIS
     Route: 048
     Dates: start: 20080716, end: 20130221
  2. MEDROL [Suspect]
     Indication: LUPUS NEPHRITIS
     Dosage: 22 MG, UNKNOWN/D, ORAL
     Route: 048
     Dates: end: 20080812
  3. CRAVIT [Suspect]
     Indication: TONSILLITIS
     Dosage: 300 MG, UNKNOWN/D, ORAL
     Route: 048
     Dates: start: 20090917, end: 20090923
  4. CRAVIT [Suspect]
     Dosage: 300 MG, UNKNOWN/D, ORAL
     Route: 048
     Dates: start: 20090917, end: 20090923
  5. CRAVIT [Suspect]
     Dosage: 300 MG, UNKNOWN/D, ORAL
     Route: 048
     Dates: start: 20090917, end: 20090923
  6. PLETAAL [Suspect]
     Dosage: 200 MG, UNKNOWN/D, ORAL
     Route: 048
     Dates: end: 20081008
  7. PREDNISLONE (PREDNISOLONE) [Concomitant]
  8. PREDNISONE (PREDNISOLONE) [Concomitant]
  9. PREDNISONE (PREDNISOLONE) [Concomitant]
  10. PREDNISONE (PREDNISOLONE) [Concomitant]
  11. PREDNISONE (PREDNISOLONE) [Concomitant]
  12. PREDNISONE (PREDNISOLONE) [Concomitant]
  13. PREDNISONE (PREDNISOLONE) [Concomitant]
  14. PREDNISONE (PREDNISOLONE) [Concomitant]
  15. PARIET (RABEPRAZOLE SODIUM) TABLET [Concomitant]
  16. BAYASPIRIN (ACETYLSALICYLIC ACID) (ACETYLSALICYLIC ACID) [Concomitant]
  17. WARFARIN (WARFARIN) [Concomitant]
  18. WARFARIN (WARFARIN) [Concomitant]
  19. WARFARIN (WARFARIN) [Concomitant]
  20. WARFARIN (WARFARIN) [Suspect]
     Dosage: 300 MG, UNKNOWN/D, ORAL
     Route: 048
     Dates: start: 20090626, end: 20090630
  21. WARFARIN (WARFARIN) [Suspect]
     Dosage: 300 MG, UNKNOWN/D, ORAL
     Route: 048
     Dates: start: 20090626, end: 20090630
  22. WARFARIN (WARFARIN) [Suspect]
     Dosage: 300 MG, UNKNOWN/D, ORAL
     Route: 048
     Dates: start: 20090626, end: 20090630
  23. WARFARIN (WARFARIN) [Concomitant]
  24. WARFARIN (WARFARIN) [Concomitant]
  25. WARFARIN (WARFARIN) [Concomitant]
  26. WARFARIN (WARFARIN) [Concomitant]
  27. MICARDIS (TELMISARTAN) TABLET [Concomitant]
  28. MICARDIS (TELMISARTAN) TABLET [Concomitant]
  29. MICARDIS (TELMISARTAN) TABLET [Concomitant]
  30. EVAMYL (LORMETAZEPAM) TABLET [Concomitant]
  31. BAKTAR (SULFAMETHOXAZOLE, TRIMETHOPRIM) TABLET [Concomitant]
  32. FUNGIZONE (AMPHOTERICIN B) SYRUP [Concomitant]
  33. FUNGIZONE (AMPHOTERICIN B) SYRUP [Concomitant]
  34. ACTONEL (RISEDRONATE SODIUM) TABLET [Concomitant]
  35. ACTONEL (RISEDRONATE SODIUM) TABLET [Concomitant]
  36. LASIX (FUROSEMIDE) [Concomitant]
  37. PL GRAN. [Concomitant]
  38. PL GRAN. [Concomitant]
  39. PL GRAN. [Concomitant]
  40. FLOMOX (CEFCAPENE PIVOXIL HYDROCHLORIDE) [Concomitant]
  41. KAYTWO N (MENATETRENONE) INJECTION [Concomitant]
  42. LAC B (LACTOBACILLUS BIFIDUS, LYOPHILIZED) [Concomitant]
  43. LAC B (LACTOBACILLUS BIFIDUS, LYOPHILIZED) [Concomitant]
  44. PRIMPERAN (METCLOPRAMIDE HYDROCHLORIDE) FORMULATION [Concomitant]
  45. PRIMPERAN (METCLOPRAMIDE HYDROCHLORIDE) FORMULATION [Concomitant]
  46. PRIMPERAN (METCLOPRAMIDE HYDROCHLORIDE) FORMULATION [Concomitant]
  47. PRIMPERAN (METCLOPRAMIDE HYDROCHLORIDE) FORMULATION [Concomitant]
  48. PRIMPERAN (METCLOPRAMIDE HYDROCHLORIDE) FORMULATION [Concomitant]
  49. PRIMPERAN (METCLOPRAMIDE HYDROCHLORIDE) FORMULATION [Concomitant]
  50. LAMISIL (TERBINAFINE HYDROCHLORIDE) TABLET [Concomitant]
  51. ONEALFA (ALFACALCIDOL) [Concomitant]
  52. PLETAAL (CILOSTAZOL) ORODISPERSIBLE CR TABLET [Concomitant]
  53. PLETAAL (CILOSTAZOL) ORODISPERSIBLE CR TABLET [Concomitant]
  54. FERROMIA (FERROUS SODIUM CITRATE) TABLET [Concomitant]
  55. FERROMIA (FERROUS SODIUM CITRATE) TABLET [Concomitant]
  56. SUMILU (FELBINAC) EXTERNAL [Concomitant]
  57. CALFINA (ALFACALCIDOL) [Concomitant]
  58. LOXONIN (LOXOPROFEN SODIUM) [Concomitant]
  59. ZITHROMAC (AZITHROMYCIN) [Concomitant]
  60. MEDICON /00048102/ (DEXTROMETHORPHAN HYDROBROMIDE) [Concomitant]
  61. SENNAL (SENNOSIDE A+B CALCIUM) TABLET [Concomitant]
  62. OZEX /01070602/ (TOSUFLOXACIN TOSILATE) [Concomitant]
  63. TRANSAMIN (TRANEXAMIC ACID) [Concomitant]
  64. TRANSAMIN (TRANEXAMIC ACID) [Concomitant]
  65. MUCODYNE (CARBOCISTEINE) [Concomitant]
  66. SP /00148702/ (DEQUALINIUM CHLORIDE) LOZENGE [Concomitant]
  67. RINDERON VG (BETAMETHASONE VALERATE, GENTAMICIN SULFATE) EXTERNAL [Concomitant]
  68. VEEN D (CALCIUM CHLORIDE DIHYDRATE, GLUCOSE, POTASSIUM CHLORIDE, SODIUM ACETATE, SODIUM CHLORIDE) INJECTION [Concomitant]
  69. SOLITA-T3 (POTASSIUM CHLORIDE, SODIUM CHLORIDE, SODIUM LACTATE) INJECTION [Concomitant]
  70. SOLITA-T3 (POTASSIUM CHLORIDE, SODIUM CHLORIDE, SODIUM LACTATE) INJECTION [Concomitant]
  71. AMIKACIN (AMIKACIN) INJECTION [Concomitant]
  72. SOLETON (ZALTOPROFEN) FORMULATION [Concomitant]

REACTIONS (35)
  - Haemorrhagic diathesis [None]
  - Upper respiratory tract inflammation [None]
  - Urinary tract infection [None]
  - Enterocolitis [None]
  - Dental caries [None]
  - Dizziness [None]
  - Myalgia [None]
  - Gastroenteritis [None]
  - Tonsillitis [None]
  - Pain in extremity [None]
  - Acute tonsillitis [None]
  - Gingival bleeding [None]
  - Eczema [None]
  - Dermatitis allergic [None]
  - Haemoglobin decreased [None]
  - International normalised ratio increased [None]
  - Prothrombin time prolonged [None]
  - Maternal exposure during pregnancy [None]
  - Dizziness [None]
  - Iron deficiency anaemia [None]
  - Condition aggravated [None]
  - Musculoskeletal stiffness [None]
  - White blood cell count decreased [None]
  - Constipation [None]
  - Gastroenteritis viral [None]
  - Posture abnormal [None]
  - Cough [None]
  - Pyrexia [None]
  - Oropharyngeal pain [None]
  - Pharyngeal erythema [None]
  - Rhinorrhoea [None]
  - Nasopharyngitis [None]
  - Vomiting [None]
  - Diarrhoea [None]
  - Pregnancy [None]
